FAERS Safety Report 5093529-7 (Version None)
Quarter: 2006Q3

REPORT INFORMATION
  Report Type: 
  Country: None (occurrence: None)
  Receive Date: 20060829
  Receipt Date: 20060816
  Transmission Date: 20061208
  Serious: Yes (Other)
  Sender: FDA-Public Use
  Company Number: 2006100658

PATIENT
  Age: 70 Year
  Sex: Female
  Weight: 90.7194 kg

DRUGS (2)
  1. SUTENT [Suspect]
     Indication: RENAL CELL CARCINOMA STAGE UNSPECIFIED
     Dosage: 37.5 MG (12.5 MG,FREQUENCY: TID INTERVAL: EVERYDAY)
  2. COREG [Concomitant]

REACTIONS (4)
  - ANAEMIA [None]
  - BLOOD URINE PRESENT [None]
  - DIALYSIS [None]
  - THROMBOSIS [None]
